FAERS Safety Report 9209848 (Version 1)
Quarter: 2013Q2

REPORT INFORMATION
  Report Type: Spontaneous
  Country: US (occurrence: US)
  Receive Date: 20130404
  Receipt Date: 20130404
  Transmission Date: 20140414
  Serious: No
  Sender: FDA-Public Use
  Company Number: US-ASTELLAS-2013US001215

PATIENT
  Age: 85 Year
  Sex: Male

DRUGS (7)
  1. MYRBETRIQ [Suspect]
     Indication: URGE INCONTINENCE
     Dosage: 25 MG, UNKNOWN/D
     Route: 048
     Dates: start: 20130123
  2. MYRBETRIQ [Suspect]
     Indication: POLLAKIURIA
  3. MYRBETRIQ [Suspect]
     Indication: MICTURITION URGENCY
  4. ALEVE [Concomitant]
     Indication: PRODUCT USED FOR UNKNOWN INDICATION
     Dosage: UNK
     Route: 065
  5. GLUCOSAMINE + CHONDROITIN [Concomitant]
     Indication: PRODUCT USED FOR UNKNOWN INDICATION
     Dosage: UNK
     Route: 065
  6. VITAMIN D3 [Concomitant]
     Indication: PRODUCT USED FOR UNKNOWN INDICATION
     Dosage: UNK
     Route: 065
  7. ASPIRIN [Concomitant]
     Indication: PRODUCT USED FOR UNKNOWN INDICATION
     Dosage: 81 MG, UNKNOWN/D
     Route: 065

REACTIONS (4)
  - Insomnia [Unknown]
  - Feeling cold [Unknown]
  - Nasal congestion [Unknown]
  - Asthenia [Unknown]
